FAERS Safety Report 18709060 (Version 2)
Quarter: 2021Q1

REPORT INFORMATION
  Report Type: Spontaneous
  Country: US (occurrence: US)
  Receive Date: 20210107
  Receipt Date: 20210324
  Transmission Date: 20210419
  Serious: No
  Sender: FDA-Public Use
  Company Number: US-SA-2021SA004434

PATIENT
  Age: 69 Year
  Sex: Female

DRUGS (3)
  1. IRON (SALT NOT SPECIFIED) [Suspect]
     Active Substance: IRON
  2. DUPIXENT [Suspect]
     Active Substance: DUPILUMAB
     Indication: DERMATITIS ATOPIC
     Dosage: 300 MG, QOW
     Route: 058
     Dates: start: 20200105, end: 2020
  3. KENALOG [Concomitant]
     Active Substance: TRIAMCINOLONE ACETONIDE
     Indication: PRURITUS
     Dosage: UNK

REACTIONS (3)
  - Herpes zoster [Recovered/Resolved]
  - Dry skin [Unknown]
  - Blood iron increased [Unknown]

NARRATIVE: CASE EVENT DATE: 2020
